FAERS Safety Report 7280715-0 (Version None)
Quarter: 2011Q1

REPORT INFORMATION
  Report Type: 
  Country: None (occurrence: None)
  Receive Date: 20110208
  Receipt Date: 20110201
  Transmission Date: 20110831
  Serious: Yes (Other)
  Sender: FDA-Public Use
  Company Number: B0697395A

PATIENT
  Age: 71 Year
  Sex: Male

DRUGS (2)
  1. ROPINIROLE HYDROCHLORIDE [Suspect]
     Indication: RESTLESS LEGS SYNDROME
     Route: 048
  2. TOPALGIC (FRANCE) [Concomitant]
     Route: 065

REACTIONS (4)
  - MUSCLE ATROPHY [None]
  - FATIGUE [None]
  - PERIARTICULAR DISORDER [None]
  - SUDDEN ONSET OF SLEEP [None]
